FAERS Safety Report 11272693 (Version 1)
Quarter: 2015Q3

REPORT INFORMATION
  Report Type: Spontaneous
  Country: US (occurrence: None)
  Receive Date: 20150714
  Receipt Date: 20150714
  Transmission Date: 20151125
  Serious: No
  Sender: FDA-Public Use
  Company Number: None

PATIENT
  Age: 56 Year
  Sex: Male
  Weight: 95.26 kg

DRUGS (1)
  1. ZOLMITRIPTAN. [Suspect]
     Active Substance: ZOLMITRIPTAN
     Indication: MIGRAINE
     Dosage: 1 ON TONGUE QD PRN
     Route: 048

REACTIONS (4)
  - Drug effect decreased [None]
  - Product quality issue [None]
  - Product substitution issue [None]
  - Product solubility abnormal [None]

NARRATIVE: CASE EVENT DATE: 20150710
